FAERS Safety Report 7252826-7 (Version None)
Quarter: 2011Q1

REPORT INFORMATION
  Report Type: 
  Country: None (occurrence: None)
  Receive Date: 20110129
  Receipt Date: 20100118
  Transmission Date: 20110831
  Serious: No
  Sender: FDA-Public Use
  Company Number: US-ABBOTT-10P-163-0620672-00

PATIENT
  Sex: Female
  Weight: 81.72 kg

DRUGS (4)
  1. METHOTREXATE [Concomitant]
     Indication: RHEUMATOID ARTHRITIS
  2. HUMIRA [Suspect]
     Indication: RHEUMATOID ARTHRITIS
     Route: 058
  3. H1N1 VACCINATION [Suspect]
     Indication: H1N1 INFLUENZA
     Route: 058
     Dates: start: 20100113, end: 20100113
  4. H1N1 VACCINATION [Suspect]
     Indication: PROPHYLAXIS

REACTIONS (1)
  - TREMOR [None]
